FAERS Safety Report 18978245 (Version 4)
Quarter: 2023Q1

REPORT INFORMATION
  Report Type: Spontaneous
  Country: US (occurrence: US)
  Receive Date: 20210307
  Receipt Date: 20230306
  Transmission Date: 20230417
  Serious: Yes (Other)
  Sender: FDA-Public Use
  Company Number: US-SA-SAC20210303000278

PATIENT
  Age: 58 Year
  Sex: Female

DRUGS (2)
  1. DUPIXENT [Suspect]
     Active Substance: DUPILUMAB
     Indication: Dermatitis atopic
     Dosage: 300 MG, FREQUENCY: OTHER
     Route: 048
     Dates: start: 20210215
  2. DUPIXENT [Suspect]
     Active Substance: DUPILUMAB
     Dosage: 300 MG, FREQUENCY: OTHER
     Route: 058

REACTIONS (9)
  - Renal impairment [Recovering/Resolving]
  - Seborrhoeic dermatitis [Unknown]
  - Weight increased [Unknown]
  - Pigmentation disorder [Unknown]
  - Skin exfoliation [Unknown]
  - Rash [Unknown]
  - Arthralgia [Unknown]
  - Incorrect route of product administration [Unknown]
  - Intentional product misuse [Unknown]

NARRATIVE: CASE EVENT DATE: 20210201
